FAERS Safety Report 9452245 (Version 1)
Quarter: 2013Q3

REPORT INFORMATION
  Report Type: Other
  Country: DK (occurrence: DK)
  Receive Date: 20130812
  Receipt Date: 20130812
  Transmission Date: 20140515
  Serious: Yes (Other)
  Sender: FDA-Public Use
  Company Number: DK-BRISTOL-MYERS SQUIBB COMPANY-19151042

PATIENT
  Age: 41 Year
  Sex: Female

DRUGS (6)
  1. ETOPOSIDE [Suspect]
     Indication: EWING^S SARCOMA
     Dosage: 2 SERIES 300 MG DAILY IN 3 CONSECUTIVE DAYS ?1 SERIES 240 MG DAILY FOR 3 CONSECUTIVE DAYS
  2. IFOSFAMIDE [Interacting]
     Indication: EWING^S SARCOMA
     Dosage: 3 SERIES OF 6 GRAM DAILY FOR 3 CONSECUTIVE DAYS ?1 SERIES OF 4.8 GRAM DAILY FOR 3 CONSECUTIVE DAYS
  3. VINCRISTINE [Interacting]
     Indication: EWING^S SARCOMA
     Dosage: 5 SERIES OF 2MG SINGLE DOSE
  4. FLUCONAZOLE [Interacting]
     Indication: ORAL CANDIDIASIS
     Dosage: 100 MG DAILY DOSE FOR 10 DAYS RELATED TO THE CHEMOTHERAPY SERIES
  5. MIRTAZAPINE [Interacting]
  6. PREDNISOLONE [Interacting]

REACTIONS (2)
  - Neurotoxicity [Recovering/Resolving]
  - Drug interaction [Unknown]
